FAERS Safety Report 18508550 (Version 1)
Quarter: 2020Q4

REPORT INFORMATION
  Report Type: Spontaneous
  Country: US (occurrence: US)
  Receive Date: 20201116
  Receipt Date: 20201116
  Transmission Date: 20210114
  Serious: Yes (Hospitalization, Other)
  Sender: FDA-Public Use
  Company Number: US-APOTEX-2020AP021660

PATIENT
  Age: 31 Year
  Sex: Female

DRUGS (3)
  1. LISDEXAMFETAMINE [Suspect]
     Active Substance: LISDEXAMFETAMINE
     Indication: PRODUCT USED FOR UNKNOWN INDICATION
     Dosage: UNK
     Route: 048
  2. ESCITALOPRAM [Suspect]
     Active Substance: ESCITALOPRAM OXALATE
     Indication: PRODUCT USED FOR UNKNOWN INDICATION
     Dosage: UNK
     Route: 048
  3. BUPROPION. [Suspect]
     Active Substance: BUPROPION
     Indication: PRODUCT USED FOR UNKNOWN INDICATION
     Dosage: UNK
     Route: 048

REACTIONS (8)
  - Intentional overdose [Recovering/Resolving]
  - Mydriasis [Recovering/Resolving]
  - Hyperhidrosis [Recovering/Resolving]
  - Suicide attempt [Unknown]
  - Muscle rigidity [Recovering/Resolving]
  - Mental status changes [Recovering/Resolving]
  - Serotonin syndrome [Recovering/Resolving]
  - Clonus [Recovering/Resolving]
